FAERS Safety Report 8592794-9 (Version None)
Quarter: 2012Q3

REPORT INFORMATION
  Report Type: 
  Country: None (occurrence: None)
  Receive Date: 20120814
  Receipt Date: 20120808
  Transmission Date: 20120928
  Serious: Yes (Life-Threatening, Other)
  Sender: FDA-Public Use
  Company Number: US-CELGENEUS-163-21880-12081117

PATIENT
  Sex: Male

DRUGS (9)
  1. DICLOFENAC [Concomitant]
     Route: 065
  2. FINASTERIDE [Concomitant]
     Route: 065
  3. MORPHINE [Concomitant]
     Route: 065
  4. SIMVASTATIN [Concomitant]
     Route: 065
  5. ATENOLOL [Concomitant]
     Route: 065
  6. REVLIMID [Suspect]
     Indication: MULTIPLE MYELOMA
     Dosage: 25 MILLIGRAM
     Route: 048
     Dates: start: 20120724
  7. PANTOPRAZOLE [Concomitant]
     Route: 065
  8. VICODIN [Concomitant]
     Route: 065
  9. TEMAZEPAM [Concomitant]
     Route: 065

REACTIONS (5)
  - PAIN IN EXTREMITY [None]
  - DYSPNOEA [None]
  - SKIN DISCOLOURATION [None]
  - RASH [None]
  - OEDEMA PERIPHERAL [None]
